FAERS Safety Report 10804058 (Version 2)
Quarter: 2015Q1

REPORT INFORMATION
  Report Type: Spontaneous
  Country: CA (occurrence: CA)
  Receive Date: 20150217
  Receipt Date: 20150303
  Transmission Date: 20150721
  Serious: Yes (Hospitalization, Other)
  Sender: FDA-Public Use
  Company Number: CA-TAKEDA-2015TUS001889

PATIENT
  Sex: Female

DRUGS (13)
  1. ATENOLOL. [Concomitant]
     Active Substance: ATENOLOL
     Dosage: 25 MG, QD
     Route: 048
  2. DICLOFENAC [Concomitant]
     Active Substance: DICLOFENAC
     Dosage: 1 APPLICATION, TWICE DAILY AS NEEDED
     Route: 061
  3. DOXAZOSIN [Concomitant]
     Active Substance: DOXAZOSIN\DOXAZOSIN MESYLATE
     Dosage: 2 MG, ONCE DAILY AT BEDTIME
     Route: 048
  4. ACETAMINOPHEN. [Concomitant]
     Active Substance: ACETAMINOPHEN
     Dosage: UNK, AS NEEDED
  5. ACETYLSALICYLIC ACID [Concomitant]
     Active Substance: ASPIRIN
     Dosage: 81 MG, ONCE DAILY WITH FOOD
     Route: 048
  6. INSULIN LISPRO-INSULIN LISPRO PROTAMINE [Concomitant]
     Dosage: 33 UNITS, BEFORE SUPPER
     Route: 058
  7. ULORIC [Suspect]
     Active Substance: FEBUXOSTAT
     Dosage: 40 MG, QD
     Route: 048
  8. INSULIN LISPRO-INSULIN LISPRO PROTAMINE [Concomitant]
     Dosage: 88 UNITS, BEFORE BREAKFAST (PATIENT SPLITS DOSE INTO 44 UNITS X 2)
     Route: 058
  9. CYANOCOBALAMIN. [Concomitant]
     Active Substance: CYANOCOBALAMIN
     Dosage: 1000 ?G, ONCE DAILY
     Route: 048
  10. ATORVASTAN [Concomitant]
     Dosage: 10 MG, ONCE DAILY AT BEDTIME
     Route: 048
  11. FUROSEMIDE. [Concomitant]
     Active Substance: FUROSEMIDE
     Dosage: 40 MG, EVERY MORNING
     Route: 048
  12. LISINOPRIL. [Concomitant]
     Active Substance: LISINOPRIL
     Dosage: 20 MG, ONCE DAILY
     Route: 048
  13. ULORIC [Suspect]
     Active Substance: FEBUXOSTAT
     Indication: GOUT
     Dosage: 80 MG, ONCE DAILY
     Route: 048

REACTIONS (1)
  - Cardiac failure congestive [Unknown]
